FAERS Safety Report 18265970 (Version 1)
Quarter: 2020Q3

REPORT INFORMATION
  Report Type: Spontaneous
  Country: AT (occurrence: AT)
  Receive Date: 20200915
  Receipt Date: 20200915
  Transmission Date: 20201103
  Serious: Yes (Other)
  Sender: FDA-Public Use
  Company Number: AT-SUN PHARMACEUTICAL INDUSTRIES LTD-2019R1-221026

PATIENT
  Age: 63 Year
  Sex: Male

DRUGS (1)
  1. FINGOLIMOD. [Suspect]
     Active Substance: FINGOLIMOD
     Indication: RELAPSING-REMITTING MULTIPLE SCLEROSIS
     Dosage: UNK
     Route: 065
     Dates: start: 201205

REACTIONS (5)
  - Disease recurrence [Unknown]
  - Atrioventricular block complete [Unknown]
  - Bladder dysfunction [Unknown]
  - Rebound effect [Unknown]
  - Renal failure [Unknown]
